FAERS Safety Report 17124881 (Version 2)
Quarter: 2020Q3

REPORT INFORMATION
  Report Type: Spontaneous
  Country: US (occurrence: US)
  Receive Date: 20191206
  Receipt Date: 20200924
  Transmission Date: 20201102
  Serious: Yes (Death)
  Sender: FDA-Public Use
  Company Number: US-FRESENIUS KABI-FK201913376

PATIENT
  Sex: Female

DRUGS (1)
  1. FLUOROURACIL (MANUFACTURER UNKNOWN) [Suspect]
     Active Substance: FLUOROURACIL
     Indication: PRODUCT USED FOR UNKNOWN INDICATION
     Dosage: FU 1900 MG IN 105 ML NS (INCL OVERFILL)?INFUSE 5FU INTRAVENOUSLY AT 2 ML/HR VIA CADD TO DELIVER.
     Route: 042
     Dates: start: 201812

REACTIONS (1)
  - Toxicity to various agents [Fatal]
